FAERS Safety Report 6255349-7 (Version None)
Quarter: 2009Q3

REPORT INFORMATION
  Report Type: 
  Country: None (occurrence: None)
  Receive Date: 20090702
  Receipt Date: 20090624
  Transmission Date: 20100115
  Serious: Yes (Hospitalization)
  Sender: FDA-Public Use
  Company Number: BE-ABBOTT-08P-013-0471888-00

PATIENT
  Sex: Female
  Weight: 44 kg

DRUGS (11)
  1. HUMIRA [Suspect]
     Indication: PSORIASIS
     Route: 058
     Dates: start: 20060110, end: 20080902
  2. HUMIRA [Suspect]
     Route: 058
  3. METFORMIN HCL [Concomitant]
     Indication: DIABETES PROPHYLAXIS
     Dosage: 3 X 2C/DAY
     Dates: start: 20051015
  4. LANTUS [Concomitant]
     Indication: DIABETES MELLITUS
     Dates: start: 20070222, end: 20080205
  5. LANTUS [Concomitant]
     Dates: start: 20080205
  6. NOVORAPID [Concomitant]
     Indication: DIABETES MELLITUS
     Dosage: 4 UNITS EACH EVENING
     Dates: start: 20070222, end: 20080205
  7. NOVORAPID [Concomitant]
     Dates: start: 20080205
  8. PERINDOPRIL ERBUMINE [Concomitant]
     Indication: PROPHYLAXIS
     Dates: start: 20070222
  9. PERINDOPRIL ERBUMINE [Concomitant]
     Indication: RENAL DISORDER
  10. PAROXETINE HCL [Concomitant]
     Indication: DEPRESSION
     Dates: start: 20070522
  11. PROTHIADEN [Concomitant]
     Indication: DEPRESSION
     Dates: start: 20070522

REACTIONS (2)
  - BARTHOLINITIS [None]
  - DIABETES MELLITUS [None]
